FAERS Safety Report 12179136 (Version 2)
Quarter: 2016Q2

REPORT INFORMATION
  Report Type: Spontaneous
  Country: GB (occurrence: GB)
  Receive Date: 20160315
  Receipt Date: 20160610
  Transmission Date: 20160815
  Serious: Yes (Death, Other)
  Sender: FDA-Public Use
  Company Number: GB-AUROBINDO-AUR-APL-2016-03077

PATIENT
  Age: 74 Year
  Sex: Male

DRUGS (2)
  1. RIBAVIRIN. [Suspect]
     Active Substance: RIBAVIRIN
     Indication: ANTIVIRAL TREATMENT
     Dosage: 600 MG, TWO TIMES A DAY
     Route: 048
     Dates: start: 201407
  2. ATRIPLA [Interacting]
     Active Substance: EFAVIRENZ\EMTRICITABINE\TENOFOVIR DISOPROXIL FUMARATE
     Indication: HIV INFECTION
     Dosage: UNK
     Route: 065

REACTIONS (6)
  - Multiple organ dysfunction syndrome [Fatal]
  - Vomiting [Unknown]
  - Drug interaction [Unknown]
  - Drug-induced liver injury [Not Recovered/Not Resolved]
  - Condition aggravated [Unknown]
  - Jaundice [Unknown]
